FAERS Safety Report 9703217 (Version 1)
Quarter: 2013Q4

REPORT INFORMATION
  Report Type: Spontaneous
  Country: AU (occurrence: AU)
  Receive Date: 20131122
  Receipt Date: 20131122
  Transmission Date: 20140711
  Serious: Yes (Other)
  Sender: FDA-Public Use
  Company Number: AU-ROCHE-1307582

PATIENT
  Age: 60 Year
  Sex: Female

DRUGS (3)
  1. AVASTIN [Suspect]
     Indication: LUNG NEOPLASM MALIGNANT
     Route: 065
     Dates: start: 201003
  2. CARBOPLATIN [Concomitant]
     Route: 065
     Dates: start: 201003
  3. PACLITAXEL [Concomitant]
     Route: 065
     Dates: start: 201003

REACTIONS (3)
  - Musculoskeletal chest pain [Unknown]
  - EGFR gene mutation [Unknown]
  - Neoplasm progression [Unknown]
